FAERS Safety Report 10068162 (Version 2)
Quarter: 2014Q2

REPORT INFORMATION
  Report Type: Spontaneous
  Country: CA (occurrence: CA)
  Receive Date: 20140409
  Receipt Date: 20140409
  Transmission Date: 20141212
  Serious: Yes (Hospitalization)
  Sender: FDA-Public Use
  Company Number: CA-BAXTER-2014BAX013300

PATIENT
  Age: 49 Year
  Sex: Female

DRUGS (1)
  1. DIANEAL PD4 SOLUTION WITH 1.5% DEXTROSE AND 2.5 MEQ/L CALCIUM [Suspect]
     Indication: PERITONEAL DIALYSIS
     Route: 033
     Dates: start: 20140302

REACTIONS (4)
  - Traumatic lung injury [Unknown]
  - Peritonitis bacterial [Recovered/Resolved]
  - Procedural pain [Unknown]
  - Muscle spasms [Unknown]
